FAERS Safety Report 4527446-5 (Version None)
Quarter: 2004Q4

REPORT INFORMATION
  Report Type: 
  Country: None (occurrence: None)
  Receive Date: 20041215
  Receipt Date: 20041208
  Transmission Date: 20050328
  Serious: Yes (Hospitalization)
  Sender: FDA-Public Use
  Company Number: 200421959GDDC

PATIENT
  Age: 47 Year
  Sex: Female

DRUGS (6)
  1. MINIRIN ^FERRING^ [Suspect]
     Indication: DIABETES INSIPIDUS
     Route: 048
     Dates: start: 20040101, end: 20040101
  2. AUGMENTIN '125' [Concomitant]
     Indication: BRONCHITIS
     Route: 048
     Dates: start: 20040101, end: 20040101
  3. OXAZEPAM [Concomitant]
     Route: 048
  4. CLIMASTON [Concomitant]
     Indication: MENOPAUSAL DISORDER
     Route: 048
  5. DIAZEPAM [Concomitant]
  6. NICARDIPINE HYDROCHLORIDE [Concomitant]
     Route: 048

REACTIONS (9)
  - CHEST PAIN [None]
  - DEHYDRATION [None]
  - DRUG INEFFECTIVE [None]
  - FALL [None]
  - GASTROINTESTINAL DISORDER [None]
  - HYPOKALAEMIA [None]
  - HYPONATRAEMIA [None]
  - MEDICATION ERROR [None]
  - TREATMENT NONCOMPLIANCE [None]
